FAERS Safety Report 9606956 (Version 2)
Quarter: 2014Q1

REPORT INFORMATION
  Report Type: Spontaneous
  Country: US (occurrence: US)
  Receive Date: 20131008
  Receipt Date: 20140212
  Transmission Date: 20141002
  Serious: No
  Sender: FDA-Public Use
  Company Number: US-009507513-1309USA013967

PATIENT
  Sex: Female

DRUGS (1)
  1. NEXPLANON [Suspect]
     Indication: CONTRACEPTION
     Dosage: UNK
     Route: 059
     Dates: start: 20130808, end: 20130926

REACTIONS (3)
  - Impaired healing [Recovered/Resolved]
  - Implant site irritation [Recovered/Resolved]
  - Device expulsion [Recovered/Resolved]
